FAERS Safety Report 24194766 (Version 1)
Quarter: 2024Q3

REPORT INFORMATION
  Report Type: Report from Study
  Country: CN (occurrence: CN)
  Receive Date: 20240809
  Receipt Date: 20240809
  Transmission Date: 20241017
  Serious: Yes (Other)
  Sender: PFIZER
  Company Number: CN-TAKEDA-2023TUS063897

PATIENT
  Age: 69 Year
  Sex: Male
  Weight: 59 kg

DRUGS (21)
  1. BRENTUXIMAB VEDOTIN [Suspect]
     Active Substance: BRENTUXIMAB VEDOTIN
     Indication: Peripheral T-cell lymphoma unspecified
     Dosage: 100 MILLIGRAM, Q3WEEKS
     Route: 041
     Dates: start: 20230620
  2. CYCLOPHOSPHAMIDE [Suspect]
     Active Substance: CYCLOPHOSPHAMIDE
     Indication: Peripheral T-cell lymphoma unspecified
     Dosage: 1 GRAM
     Route: 041
     Dates: start: 20230620
  3. DOXORUBICIN HYDROCHLORIDE [Suspect]
     Active Substance: DOXORUBICIN HYDROCHLORIDE
     Indication: Peripheral T-cell lymphoma unspecified
     Dosage: 20 MILLIGRAM
     Route: 041
     Dates: start: 20230620
  4. PREDNISONE [Suspect]
     Active Substance: PREDNISONE
     Indication: Peripheral T-cell lymphoma unspecified
     Dosage: UNK
     Route: 065
     Dates: start: 20230620
  5. INSULIN ASPART [Concomitant]
     Active Substance: INSULIN ASPART
     Indication: Type 2 diabetes mellitus
     Dosage: 6 INTERNATIONAL UNIT, QD
     Route: 058
     Dates: start: 20230615
  6. FAMOTIDINE [Concomitant]
     Active Substance: FAMOTIDINE
     Indication: Prophylaxis
     Dosage: 20 MILLIGRAM, BID
     Route: 041
     Dates: start: 20230620, end: 20230625
  7. MAGNESIUM GLYCEROPHOSPHATE [Concomitant]
     Active Substance: MAGNESIUM GLYCEROPHOSPHATE
     Indication: Prophylaxis
     Dosage: 40 MILLILITER, QD
     Route: 041
     Dates: start: 20230620, end: 20230625
  8. POTASSIUM CHLORATE [Concomitant]
     Active Substance: POTASSIUM CHLORATE
     Indication: Mineral supplementation
     Dosage: 15 MILLILITER, QD
     Route: 041
     Dates: start: 20230620, end: 20230621
  9. VITAMIN C [Concomitant]
     Active Substance: ASCORBIC ACID
     Indication: Vitamin supplementation
     Dosage: 2 GRAM, QD
     Route: 041
     Dates: start: 20230620, end: 20230621
  10. VITAMIN B6 [Concomitant]
     Active Substance: PYRIDOXINE HYDROCHLORIDE
     Indication: Vitamin supplementation
     Dosage: 0.20 GRAM, QD
     Route: 041
     Dates: start: 20230620, end: 20230621
  11. SODIUM BICARBONATE [Concomitant]
     Active Substance: SODIUM BICARBONATE
     Indication: Blood alkalinisation therapy
     Dosage: 100 MILLILITER, QD
     Route: 041
     Dates: start: 20230620, end: 20230625
  12. FUROSEMIDE [Concomitant]
     Active Substance: FUROSEMIDE
     Indication: Diuretic therapy
     Dosage: 10 MILLIGRAM, QD
     Route: 041
     Dates: start: 20230620, end: 20230625
  13. POTASSIUM CHLORIDE [Concomitant]
     Active Substance: POTASSIUM CHLORIDE
     Indication: Mineral supplementation
     Dosage: 1 GRAM, TID
     Route: 048
     Dates: start: 20230620, end: 20230625
  14. METHYLCOBALAMIN [Concomitant]
     Active Substance: METHYLCOBALAMIN
     Indication: Vitamin supplementation
     Dosage: 500 MICROGRAM, QD
     Route: 041
     Dates: start: 20230620, end: 20230625
  15. TROPISETRON HYDROCHLORIDE [Concomitant]
     Active Substance: TROPISETRON HYDROCHLORIDE
     Indication: Antiemetic supportive care
     Dosage: 5 MILLILITER, QD
     Route: 041
     Dates: start: 20230621, end: 20230622
  16. GLUTATHIONE [Concomitant]
     Active Substance: GLUTATHIONE
     Indication: Prophylaxis
     Dosage: 2.4 GRAM, QD
     Route: 041
     Dates: start: 20230620, end: 20230625
  17. PREDNISOLONE [Concomitant]
     Active Substance: PREDNISOLONE
     Indication: Lymphoma
     Dosage: 90 MILLIGRAM, QD
     Route: 041
     Dates: start: 20230621, end: 20230625
  18. PROMETHAZINE [Concomitant]
     Active Substance: PROMETHAZINE HYDROCHLORIDE
     Indication: Allergy prophylaxis
     Dosage: 25 MILLIGRAM
     Route: 030
     Dates: start: 20230620, end: 20230620
  19. DESLORATADINE [Concomitant]
     Active Substance: DESLORATADINE
     Indication: Allergy prophylaxis
     Dosage: 5 MILLIGRAM
     Route: 048
     Dates: start: 20230620, end: 20230620
  20. DEXAMETHASONE SODIUM PHOSPHATE [Concomitant]
     Active Substance: DEXAMETHASONE PHOSPHATE\DEXAMETHASONE SODIUM PHOSPHATE
     Indication: Allergy prophylaxis
     Dosage: 2.5 MILLIGRAM
     Route: 041
     Dates: start: 20230620, end: 20230620
  21. INSULIN GLARGINE [Concomitant]
     Active Substance: INSULIN GLARGINE
     Indication: Type 2 diabetes mellitus
     Dosage: 8 INTERNATIONAL UNIT, QD
     Route: 058
     Dates: start: 20230615

REACTIONS (5)
  - Atrial fibrillation [Not Recovered/Not Resolved]
  - Pneumonia [Not Recovered/Not Resolved]
  - Hepatic function abnormal [Recovered/Resolved]
  - Insomnia [Recovered/Resolved]
  - Off label use [Recovered/Resolved]

NARRATIVE: CASE EVENT DATE: 20230620
